FAERS Safety Report 18393104 (Version 1)
Quarter: 2020Q4

REPORT INFORMATION
  Report Type: Report from Study
  Country: GB (occurrence: GB)
  Receive Date: 20201016
  Receipt Date: 20201016
  Transmission Date: 20210114
  Serious: Yes (Other)
  Sender: FDA-Public Use
  Company Number: GB-SAMSUNG BIOEPIS-SB-2020-31644

PATIENT
  Sex: Female

DRUGS (1)
  1. BENEPALI [Suspect]
     Active Substance: ETANERCEPT
     Indication: ANKYLOSING SPONDYLITIS
     Route: 058
     Dates: start: 20200713

REACTIONS (5)
  - Nasopharyngitis [Unknown]
  - Symptom recurrence [Unknown]
  - Therapeutic response unexpected [Unknown]
  - Neuropathy peripheral [Unknown]
  - Food interaction [Unknown]
